FAERS Safety Report 23753203 (Version 1)
Quarter: 2024Q2

REPORT INFORMATION
  Report Type: Spontaneous
  Country: CN (occurrence: CN)
  Receive Date: 20240417
  Receipt Date: 20240417
  Transmission Date: 20240716
  Serious: Yes (Other)
  Sender: FDA-Public Use
  Company Number: CN-NAPPMUNDI-GBR-2024-0115831

PATIENT
  Age: 65 Year
  Sex: Male
  Weight: 55 kg

DRUGS (4)
  1. OXYCODONE HYDROCHLORIDE [Suspect]
     Active Substance: OXYCODONE HYDROCHLORIDE
     Indication: Analgesic therapy
     Dosage: 20 MILLIGRAM, Q12H
     Route: 048
     Dates: start: 20240318, end: 202403
  2. OXYCODONE HYDROCHLORIDE [Suspect]
     Active Substance: OXYCODONE HYDROCHLORIDE
     Dosage: 30 MILLIGRAM, BID
     Route: 048
     Dates: start: 20240401, end: 20240411
  3. ADEBRELIMAB [Suspect]
     Active Substance: ADEBRELIMAB
     Indication: Neoplasm
     Dosage: 1200 MILLIGRAM, (Q3W)
     Route: 041
     Dates: start: 20240401, end: 20240401
  4. BEVACIZUMAB [Suspect]
     Active Substance: BEVACIZUMAB
     Indication: Neoplasm
     Dosage: 300 MILLIGRAM (Q3W)
     Route: 041
     Dates: start: 20240401, end: 20240401

REACTIONS (2)
  - Platelet count decreased [Unknown]
  - Hepatic function abnormal [Unknown]

NARRATIVE: CASE EVENT DATE: 20240409
